FAERS Safety Report 9657287 (Version 4)
Quarter: 2014Q1

REPORT INFORMATION
  Report Type: Spontaneous
  Country: GR (occurrence: GR)
  Receive Date: 20131030
  Receipt Date: 20140325
  Transmission Date: 20141002
  Serious: Yes (Hospitalization, Other)
  Sender: FDA-Public Use
  Company Number: GR-VERTEX PHARMACEUTICALS INC-2012-025202

PATIENT
  Age: 64 Year
  Sex: Male
  Weight: 75 kg

DRUGS (6)
  1. INCIVO [Suspect]
     Indication: CHRONIC HEPATITIS C
     Dosage: 750 MG, UNK
     Route: 048
     Dates: start: 20120919, end: 20121217
  2. INCIVO [Suspect]
     Indication: HEPATITIS C
  3. COPEGUS [Suspect]
     Indication: CHRONIC HEPATITIS C
     Dosage: 1000 MG, QD
     Route: 048
     Dates: start: 20120919
  4. PEGINTERFERON ALFA 2A [Suspect]
     Indication: CHRONIC HEPATITIS C
     Dosage: 180 ?G, QW
     Route: 058
     Dates: start: 20120919
  5. GABAPENTIN [Concomitant]
     Indication: PRURITUS
     Dosage: 300 MG, QD
     Route: 048
     Dates: start: 20121217
  6. HYDROXYZINE HYDROCHLORIDE [Concomitant]
     Indication: PRURITUS
     Dosage: 100 MG, QD
     Route: 048
     Dates: start: 20121217

REACTIONS (6)
  - Pyrexia [Not Recovered/Not Resolved]
  - Lower respiratory tract infection [Recovered/Resolved]
  - Pulmonary fibrosis [Not Recovered/Not Resolved]
  - Anaemia [Recovered/Resolved]
  - Cough [Unknown]
  - Off label use [Recovered/Resolved]
